FAERS Safety Report 6408957-4 (Version None)
Quarter: 2009Q4

REPORT INFORMATION
  Report Type: 
  Country: None (occurrence: None)
  Receive Date: 20091021
  Receipt Date: 20091009
  Transmission Date: 20100525
  Serious: Yes (Other)
  Sender: FDA-Public Use
  Company Number: GB-PFIZER INC-2009232642

PATIENT

DRUGS (1)
  1. CABASER [Suspect]
     Dosage: 2 MG, UNK

REACTIONS (2)
  - EXPIRED DRUG ADMINISTERED [None]
  - HYPERTENSION [None]
